FAERS Safety Report 12827189 (Version 1)
Quarter: 2016Q4

REPORT INFORMATION
  Report Type: Spontaneous
  Country: US (occurrence: US)
  Receive Date: 20161007
  Receipt Date: 20161007
  Transmission Date: 20170207
  Serious: No
  Sender: FDA-Public Use
  Company Number: US-INDIVIOR LIMITED-INDV-086532-2015

PATIENT
  Age: 36 Year
  Sex: Male

DRUGS (1)
  1. SUBOXONE [Suspect]
     Active Substance: BUPRENORPHINE HYDROCHLORIDE\NALOXONE HYDROCHLORIDE
     Indication: DRUG DEPENDENCE
     Dosage: 8 MG, DAILY FOR ABOUT 6 MONTHS
     Route: 060
     Dates: start: 2010

REACTIONS (2)
  - Stomatitis [Recovered/Resolved]
  - Oral mucosal discolouration [Recovered/Resolved]

NARRATIVE: CASE EVENT DATE: 2010
